FAERS Safety Report 7908601-0 (Version None)
Quarter: 2011Q4

REPORT INFORMATION
  Report Type: 
  Country: None (occurrence: None)
  Receive Date: 20111111
  Receipt Date: 20111110
  Transmission Date: 20120403
  Serious: Yes (Other)
  Sender: FDA-Public Use
  Company Number: CN-PFIZER INC-2011274893

PATIENT
  Age: 85 Year

DRUGS (1)
  1. ZOLOFT [Suspect]
     Dosage: 1/2 TABLET, DAILY

REACTIONS (2)
  - DYSKINESIA [None]
  - VISUAL IMPAIRMENT [None]
